FAERS Safety Report 14574529 (Version 1)
Quarter: 2018Q1

REPORT INFORMATION
  Report Type: Spontaneous
  Country: US (occurrence: US)
  Receive Date: 20180224
  Receipt Date: 20180224
  Transmission Date: 20180509
  Serious: Yes (Disabling)
  Sender: FDA-Public Use
  Company Number: None

PATIENT
  Age: 42 Year
  Sex: Female
  Weight: 55.35 kg

DRUGS (4)
  1. VITAMIN D [Concomitant]
     Active Substance: CHOLECALCIFEROL
  2. QE10 [Concomitant]
  3. BIOTIN [Concomitant]
     Active Substance: BIOTIN
  4. CIPROFLOXACIN. [Suspect]
     Active Substance: CIPROFLOXACIN
     Indication: URINARY TRACT INFECTION
     Route: 048
     Dates: start: 20180213, end: 20180218

REACTIONS (6)
  - Tendon pain [None]
  - Gait disturbance [None]
  - Dysstasia [None]
  - Muscle spasms [None]
  - Peripheral swelling [None]
  - Myalgia [None]

NARRATIVE: CASE EVENT DATE: 20180217
